FAERS Safety Report 9120270 (Version 1)
Quarter: 2013Q1

REPORT INFORMATION
  Report Type: Report from Study
  Country: US (occurrence: US)
  Receive Date: 20130226
  Receipt Date: 20130226
  Transmission Date: 20140127
  Serious: No
  Sender: FDA-Public Use
  Company Number: US-VERTEX PHARMACEUTICALS INC.-2013-002571

PATIENT
  Age: 52 Year
  Sex: Male
  Weight: 64 kg

DRUGS (7)
  1. VX-950 (TELAPREVIR) [Suspect]
     Indication: HEPATITIS C
     Dosage: 750 MG, TID
     Route: 048
     Dates: start: 20130217
  2. RIBAVIRIN [Suspect]
     Indication: HEPATITIS C
     Dosage: 200 MG, UNK
  3. PEGASYS [Suspect]
     Indication: HEPATITIS C
  4. COMPLERA [Concomitant]
  5. VALTREX [Concomitant]
     Dosage: 500 MG, UNK
  6. NAPROXEN 1 A PHARMA [Concomitant]
  7. HYDROCORTISONE [Concomitant]

REACTIONS (2)
  - Rash [Unknown]
  - Anal pruritus [Unknown]
